FAERS Safety Report 20204160 (Version 2)
Quarter: 2021Q4

REPORT INFORMATION
  Report Type: Spontaneous
  Country: US (occurrence: US)
  Receive Date: 20211220
  Receipt Date: 20211225
  Transmission Date: 20220303
  Serious: No
  Sender: FDA-Public Use
  Company Number: US-SA-SAC20211216000233

PATIENT
  Age: 43 Year
  Sex: Female

DRUGS (4)
  1. DUPIXENT [Suspect]
     Active Substance: DUPILUMAB
     Indication: Dermatitis atopic
     Dosage: 300 MG, QOW
     Route: 058
     Dates: start: 20210827
  2. VITAMINS [Concomitant]
     Active Substance: VITAMINS
  3. FERROUS SULFATE [Concomitant]
     Active Substance: FERROUS SULFATE
  4. FERROUS SULFATE [Concomitant]
     Active Substance: FERROUS SULFATE

REACTIONS (2)
  - Eye irritation [Not Recovered/Not Resolved]
  - Ocular hyperaemia [Not Recovered/Not Resolved]
